FAERS Safety Report 8383852-2 (Version None)
Quarter: 2012Q2

REPORT INFORMATION
  Report Type: 
  Country: None (occurrence: None)
  Receive Date: 20120524
  Receipt Date: 20120515
  Transmission Date: 20120825
  Serious: Yes (Hospitalization)
  Sender: FDA-Public Use
  Company Number: US-ACTELION-A-NJ2012-62840

PATIENT

DRUGS (1)
  1. TRACLEER [Suspect]
     Indication: PULMONARY ARTERIAL HYPERTENSION
     Dosage: UNK
     Route: 048
     Dates: start: 20111222

REACTIONS (6)
  - PNEUMONIA [None]
  - CHEST PAIN [None]
  - APHONIA [None]
  - TOOTHACHE [None]
  - URINARY TRACT INFECTION [None]
  - DYSPNOEA [None]
